FAERS Safety Report 25337360 (Version 1)
Quarter: 2025Q2

REPORT INFORMATION
  Report Type: Spontaneous
  Country: CN (occurrence: CN)
  Receive Date: 20250520
  Receipt Date: 20250520
  Transmission Date: 20250716
  Serious: Yes (Life-Threatening, Hospitalization)
  Sender: PURDUE
  Company Number: CN-NAPPMUNDI-GBR-2025-0125701

PATIENT
  Age: 73 Year
  Sex: Male
  Weight: 60.7 kg

DRUGS (1)
  1. OXYCONTIN [Suspect]
     Active Substance: OXYCODONE HYDROCHLORIDE
     Indication: Pain
     Dosage: 20 MILLIGRAM, BID
     Route: 048
     Dates: start: 20250424, end: 20250426

REACTIONS (4)
  - Memory impairment [Recovered/Resolved]
  - Somnolence [Recovered/Resolved]
  - Flat affect [Recovered/Resolved]
  - Sleep disorder [Recovering/Resolving]

NARRATIVE: CASE EVENT DATE: 20250426
